FAERS Safety Report 8433908-0 (Version None)
Quarter: 2012Q2

REPORT INFORMATION
  Report Type: 
  Country: None (occurrence: None)
  Receive Date: 20120613
  Receipt Date: 20120605
  Transmission Date: 20120825
  Serious: Yes (Hospitalization)
  Sender: FDA-Public Use
  Company Number: US-US-EMD SERONO, INC.-7129792

PATIENT
  Sex: Female
  Weight: 93 kg

DRUGS (11)
  1. VITAMIN D2 [Concomitant]
     Indication: PRODUCT USED FOR UNKNOWN INDICATION
     Route: 048
     Dates: start: 20120515
  2. ATENOLOL [Concomitant]
     Indication: PRODUCT USED FOR UNKNOWN INDICATION
     Dosage: FOR 90 DAYS
     Route: 048
     Dates: start: 20120515
  3. CALCIUM + D3 [Concomitant]
     Indication: PRODUCT USED FOR UNKNOWN INDICATION
     Dosage: FOR 90 DAYS
     Route: 048
     Dates: start: 20120515
  4. MIRLALAX [Concomitant]
     Indication: PRODUCT USED FOR UNKNOWN INDICATION
     Dosage: AS NEEDED FOR 90 DAYS
     Route: 048
     Dates: start: 20120515
  5. SKELAXIN [Concomitant]
     Indication: PRODUCT USED FOR UNKNOWN INDICATION
     Dosage: AS NEEDED FOR 90 DAYS
     Route: 048
     Dates: start: 20120515
  6. REBIF [Suspect]
     Indication: MULTIPLE SCLEROSIS
     Route: 058
     Dates: start: 20110429, end: 20120427
  7. IRON [Concomitant]
     Indication: PRODUCT USED FOR UNKNOWN INDICATION
     Dosage: FOR 90 DAYS
     Route: 048
     Dates: start: 20120515
  8. DETROL LA XR [Concomitant]
     Indication: PRODUCT USED FOR UNKNOWN INDICATION
     Dosage: 24-HOUR EXTENDED RELEASE
     Route: 048
  9. NAPROXEN [Concomitant]
     Indication: PRODUCT USED FOR UNKNOWN INDICATION
     Dosage: AS NEEDED FOR 90 DAYS
     Route: 048
  10. NEURONTIN [Concomitant]
     Indication: PRODUCT USED FOR UNKNOWN INDICATION
     Dosage: IN THE MORNING, AT NOON, AND 3 AT BEDTIME
     Route: 048
     Dates: start: 20120126
  11. ZANTAC [Concomitant]
     Indication: PRODUCT USED FOR UNKNOWN INDICATION
     Dosage: AS NEEDED FOR 90 DAYS
     Route: 048
     Dates: start: 20120515

REACTIONS (2)
  - IDIOPATHIC THROMBOCYTOPENIC PURPURA [None]
  - FEELING COLD [None]
